FAERS Safety Report 7350442-X (Version None)
Quarter: 2011Q1

REPORT INFORMATION
  Report Type: 
  Country: None (occurrence: None)
  Receive Date: 20110314
  Receipt Date: 20110304
  Transmission Date: 20110831
  Serious: Yes (Hospitalization)
  Sender: FDA-Public Use
  Company Number: JP-ALLERGAN-1103460US

PATIENT
  Age: 78 Year
  Sex: Female

DRUGS (10)
  1. LATANOPROST [Concomitant]
     Dosage: UNK
     Dates: end: 20100208
  2. AMARYL [Concomitant]
     Dosage: UNK
  3. REFLEX                             /00684602/ [Concomitant]
     Dosage: UNK
  4. TIMOPTOL [Concomitant]
     Dosage: UNK
     Dates: start: 20070927
  5. AZOPT [Concomitant]
     Dosage: UNK
     Dates: start: 20070927
  6. ABILIFY [Concomitant]
     Dosage: UNK
  7. LUMIGAN [Suspect]
     Indication: OPEN ANGLE GLAUCOMA
     Dosage: 2 GTT, QD
     Route: 047
     Dates: start: 20100208
  8. TEARBALANCE [Concomitant]
     Dosage: UNK
     Dates: start: 20081105
  9. CILNIDIPINE [Concomitant]
     Dosage: UNK
  10. BLOPRESS [Concomitant]
     Dosage: UNK

REACTIONS (1)
  - DEPRESSION [None]
